FAERS Safety Report 5858317-X (Version None)
Quarter: 2008Q3

REPORT INFORMATION
  Report Type: 
  Country: None (occurrence: None)
  Receive Date: 20080826
  Receipt Date: 20080825
  Transmission Date: 20090109
  Serious: Yes (Other)
  Sender: FDA-Public Use
  Company Number: D0057623A

PATIENT
  Age: 15 Month
  Sex: Male

DRUGS (4)
  1. SALBUTAMOL [Suspect]
     Indication: ASTHMA
     Route: 055
     Dates: end: 20080301
  2. BUDES [Suspect]
     Indication: ASTHMA
     Dosage: 2PUFF TWICE PER DAY
     Route: 055
     Dates: start: 20070601, end: 20080101
  3. SINGULAIR [Suspect]
     Indication: ASTHMA
     Dosage: 4MG UNKNOWN
     Route: 048
     Dates: start: 20070601, end: 20080501
  4. RECTODELT [Concomitant]
     Dosage: 100MG AS REQUIRED
     Route: 054

REACTIONS (5)
  - AGITATION [None]
  - COUGH [None]
  - CYANOSIS [None]
  - DYSPNOEA [None]
  - PNEUMONIA VIRAL [None]
